FAERS Safety Report 18073925 (Version 5)
Quarter: 2020Q4

REPORT INFORMATION
  Report Type: Spontaneous
  Country: JP (occurrence: JP)
  Receive Date: 20200727
  Receipt Date: 20201219
  Transmission Date: 20210113
  Serious: Yes (Life-Threatening, Hospitalization, Disabling, Other)
  Sender: FDA-Public Use
  Company Number: JP-AMGEN-JPNSP2020118997

PATIENT
  Age: 77 Year
  Sex: Male
  Weight: 59 kg

DRUGS (77)
  1. RABEPRAZOLE NA [Concomitant]
     Active Substance: RABEPRAZOLE SODIUM
     Indication: PROPHYLAXIS AGAINST GASTROINTESTINAL ULCER
     Dosage: 10 MILLIGRAM, QD
     Dates: start: 20140204, end: 20200316
  2. SPIRONOLACTONE. [Concomitant]
     Active Substance: SPIRONOLACTONE
     Dosage: 12.5 UNK
     Dates: start: 20200512
  3. FEBURIC [Concomitant]
     Active Substance: FEBUXOSTAT
     Indication: HYPERLIPIDAEMIA
     Dosage: 10 MILLIGRAM, QD
     Dates: start: 20200317
  4. DIART [Concomitant]
     Active Substance: AZOSEMIDE
     Dosage: 30 MILLIGRAM, QD (4 TIMES A WEEK)
     Dates: start: 20200508, end: 20200511
  5. ORADOL [DOMIPHEN BROMIDE] [Concomitant]
     Indication: STOMATITIS
     Dosage: 2 MILLIGRAM, QID
     Dates: start: 20200205, end: 20200212
  6. SYMBICORT [Concomitant]
     Active Substance: BUDESONIDE\FORMOTEROL FUMARATE DIHYDRATE
     Indication: ASTHMA
     Dosage: THREE INHALATIONS IN MORNING/THREE BEFORE BED/ONE AT THE TIME OF ATTACK
     Dates: start: 20200210, end: 202002
  7. PREDNISOLONE. [Concomitant]
     Active Substance: PREDNISOLONE
     Indication: HYPERSENSITIVITY
     Dosage: 30 MILLIGRAM, BID
     Dates: start: 20200408, end: 20200408
  8. PREDNISOLONE. [Concomitant]
     Active Substance: PREDNISOLONE
     Dosage: 05 MILLIGRAM, BID
     Dates: start: 20200410, end: 2020
  9. PREDNISOLONE. [Concomitant]
     Active Substance: PREDNISOLONE
     Dosage: 10 MILLIGRAM, QD
     Dates: start: 20200625, end: 20200701
  10. BETAMETHASONE. [Concomitant]
     Active Substance: BETAMETHASONE
     Dosage: 3 MILLIGRAM, QD
     Dates: start: 20200415, end: 20200415
  11. BETAMETHASONE. [Concomitant]
     Active Substance: BETAMETHASONE
     Dosage: 2 MILLIGRAM, QD
     Dates: start: 20200416, end: 20200420
  12. BETAMETHASONE. [Concomitant]
     Active Substance: BETAMETHASONE
     Dosage: 1 MILLIGRAM, QD
     Dates: start: 20200428, end: 20200501
  13. ALESION [Concomitant]
     Active Substance: EPINASTINE HYDROCHLORIDE
     Indication: HYPERSENSITIVITY
     Dosage: OPTIMUM DOSE, QID
  14. LOXOPROFEN NA [Concomitant]
     Active Substance: LOXOPROFEN SODIUM
     Indication: CARDIAC FAILURE CONGESTIVE
     Dosage: 2 DOSAGE FORM
     Route: 048
     Dates: start: 20200211
  15. MAGMITT [Concomitant]
     Active Substance: MAGNESIUM OXIDE
     Dosage: 330 MILLIGRAM, AS NECESSARY
     Dates: start: 20200805
  16. DIART [Concomitant]
     Active Substance: AZOSEMIDE
     Indication: POLYURIA
     Dosage: 60 MILLIGRAM, QD
     Dates: start: 20200314, end: 20200316
  17. DIART [Concomitant]
     Active Substance: AZOSEMIDE
     Dosage: 60 MILLIGRAM, QD
     Dates: start: 20200415, end: 20200507
  18. DIART [Concomitant]
     Active Substance: AZOSEMIDE
     Dosage: 30 MILLIGRAM, QD (3 TIMES A WEEK)
     Dates: start: 20200512
  19. NITROPEN [Concomitant]
     Active Substance: NITROGLYCERIN
     Indication: CORONARY ARTERY DILATATION
     Dosage: 0.3 MILLIGRAM, AS NECESSARY (SINGLE DOSE FROM 10 PRESCRIBED DOSES)
     Dates: start: 20200403
  20. CILNIDIPINE [Concomitant]
     Active Substance: CILNIDIPINE
     Dosage: 5 MILLIGRAM, BID
     Dates: start: 20200519, end: 2020
  21. MELACT [Concomitant]
     Indication: WOUND
     Dosage: 300 MILLIGRAM, TID
     Dates: start: 20200807, end: 20200811
  22. AZOSEMIDE [Concomitant]
     Active Substance: AZOSEMIDE
     Indication: CARDIAC FAILURE
     Dosage: 30 MILLIGRAM, QD
     Dates: start: 20200930
  23. LYRICA [Concomitant]
     Active Substance: PREGABALIN
     Indication: ACUTE MYOCARDIAL INFARCTION
     Dosage: 100 MILLIGRAM, QID
     Dates: start: 20200210
  24. LYRICA [Concomitant]
     Active Substance: PREGABALIN
     Dosage: 50 MILLIGRAM, BID
     Dates: start: 20200210, end: 20200210
  25. ETIZOLAM [Concomitant]
     Active Substance: ETIZOLAM
     Indication: INSOMNIA
     Dosage: 0.5 MILLIGRAM, QD
     Dates: start: 20180406
  26. LIMAPROST ALFADEX [Concomitant]
     Active Substance: LIMAPROST
     Indication: LUMBAR SPINAL STENOSIS
     Dosage: 5 MICROGRAM, TID
     Dates: start: 20150902, end: 20200213
  27. NICORANDIL [Concomitant]
     Active Substance: NICORANDIL
     Dosage: 10 MILLIGRAM, BID
     Dates: start: 20200317, end: 20200324
  28. AMITIZA [Concomitant]
     Active Substance: LUBIPROSTONE
     Indication: CONSTIPATION
     Dosage: 48 MICROGRAM, QD
     Dates: start: 20200316, end: 20200316
  29. AMITIZA [Concomitant]
     Active Substance: LUBIPROSTONE
     Dosage: 48 MICROGRAM, BID
     Dates: start: 20200324, end: 20200325
  30. SPIRONOLACTONE. [Concomitant]
     Active Substance: SPIRONOLACTONE
     Indication: CARDIAC FAILURE
     Dosage: 50 MILLIGRAM, QD (SINCE AROUND NOV/2017)
     Dates: start: 2017, end: 20200323
  31. IMIDAPRIL HYDROCHLORIDE [Concomitant]
     Active Substance: IMIDAPRIL HYDROCHLORIDE
     Indication: HYPERTENSION
     Dosage: 1.25 MILLIGRAM, QD
     Dates: start: 20200317
  32. ROSUVASTATIN. [Concomitant]
     Active Substance: ROSUVASTATIN
     Indication: HYPERLIPIDAEMIA
     Dosage: 2.5 MILLIGRAM, QD
     Dates: start: 20200317
  33. EDIROL [Concomitant]
     Active Substance: ELDECALCITOL
     Indication: OSTEOPOROSIS
     Dosage: 0.5 MICROGRAM, QD
     Dates: start: 20170407
  34. FEXOFENADINE HYDROCHLORIDE. [Concomitant]
     Active Substance: FEXOFENADINE HYDROCHLORIDE
     Indication: HYPERSENSITIVITY
     Dosage: 120 MILLIGRAM, BID
     Dates: start: 20200317
  35. PREDNISOLONE. [Concomitant]
     Active Substance: PREDNISOLONE
     Dosage: 2.5 MILLIGRAM, QD
     Dates: start: 20200901, end: 20200903
  36. BETAMETHASONE. [Concomitant]
     Active Substance: BETAMETHASONE
     Dosage: 1.5 MILLIGRAM, QD
     Dates: start: 20200619, end: 20200709
  37. NICORANDIL [Concomitant]
     Active Substance: NICORANDIL
     Dosage: 10 MILLIGRAM, BID
     Dates: start: 20200131, end: 20200315
  38. LOXOPROFEN NA [Concomitant]
     Active Substance: LOXOPROFEN SODIUM
     Indication: PAIN
     Dosage: SINCE AROUND SEP/2018, 60 MILLIGRAM
     Dates: start: 2018
  39. LANSOPRAZOLE. [Concomitant]
     Active Substance: LANSOPRAZOLE
     Dosage: 15 MILLIGRAM, QD
     Dates: start: 20151102
  40. SPIRONOLACTONE. [Concomitant]
     Active Substance: SPIRONOLACTONE
     Dosage: 25 MILLIGRAM, QD
     Dates: start: 20200324, end: 20200511
  41. PIMOBENDAN [Concomitant]
     Active Substance: PIMOBENDAN
     Indication: CARDIAC FAILURE
     Dosage: 5 MILLIGRAM, BID
     Dates: start: 20200317, end: 20200511
  42. LUNESTA [Concomitant]
     Active Substance: ESZOPICLONE
     Indication: INSOMNIA
     Dosage: 0.5 MILLIGRAM, QD
     Dates: start: 20200317
  43. SAMSCA [Concomitant]
     Active Substance: TOLVAPTAN
     Indication: POLYURIA
     Dosage: 7.5 MILLIGRAM, QD (MON, TUES, SAT)
     Dates: start: 20200317
  44. PROPETO [Concomitant]
     Active Substance: PETROLATUM
     Indication: SKIN DISORDER
     Dosage: 20 GRAM, AS NECESSARY
     Dates: start: 20200323
  45. PREDNISOLONE. [Concomitant]
     Active Substance: PREDNISOLONE
     Dosage: 10 MILLIGRAM, QD
     Dates: start: 20200409, end: 20200409
  46. PREDNISOLONE. [Concomitant]
     Active Substance: PREDNISOLONE
     Dosage: 5 MILLIGRAM, QD
     Dates: start: 20200807, end: 20200831
  47. PREDNISOLONE. [Concomitant]
     Active Substance: PREDNISOLONE
     Dosage: 7.5 MILLIGRAM, QD
     Dates: start: 20200904, end: 20200923
  48. PREDNISOLONE. [Concomitant]
     Active Substance: PREDNISOLONE
     Dosage: 2.5 MILLIGRAM, QD
     Dates: start: 20200924, end: 20201013
  49. LECICARBON [SODIUM BICARBONATE;SODIUM PHOSPHATE MONOBASIC (ANHYDROUS)] [Concomitant]
     Indication: DIARRHOEA
     Dosage: SINGLE DOSE
     Dates: start: 20200322
  50. EVENITY [Suspect]
     Active Substance: ROMOSOZUMAB-AQQG
     Indication: PRODUCT USED FOR UNKNOWN INDICATION
     Dosage: 210 MILLIGRAM
     Route: 058
     Dates: start: 20190807, end: 20200205
  51. SYMBICORT [Concomitant]
     Active Substance: BUDESONIDE\FORMOTEROL FUMARATE DIHYDRATE
     Indication: BRONCHIAL DISORDER
     Dosage: 4 TIMES OF INHALATION
     Dates: start: 20170807, end: 2020
  52. NICORANDIL [Concomitant]
     Active Substance: NICORANDIL
     Indication: CORONARY ARTERY DILATATION
     Dosage: 2.5 MILLIGRAM, QD
     Dates: start: 20150223, end: 20200130
  53. NICORANDIL [Concomitant]
     Active Substance: NICORANDIL
     Dosage: 5 MILLIGRAM, BID
     Dates: start: 20200325, end: 20200401
  54. AMLODIPINE [AMLODIPINE BESILATE] [Concomitant]
     Active Substance: AMLODIPINE BESYLATE
     Indication: HYPERTENSION
     Dosage: 1.25 MILLIGRAM, QD
     Dates: start: 20180109
  55. MAGMITT [Concomitant]
     Active Substance: MAGNESIUM OXIDE
     Indication: CONSTIPATION
     Dosage: SINCE AROUND 2009, 250 MILLIGRAM, AS NECESSARY
     Dates: end: 20200804
  56. PICOSULFATE NA [Concomitant]
     Active Substance: SODIUM PICOSULFATE
     Indication: CONSTIPATION
     Dosage: UNK UNK, AS NECESSARY
     Dates: start: 20200316
  57. BETAMETHASONE. [Concomitant]
     Active Substance: BETAMETHASONE
     Dosage: 0.5 MILLIGRAM, QD
     Dates: start: 20200512, end: 20200618
  58. NICORANDIL [Concomitant]
     Active Substance: NICORANDIL
     Dosage: 10 MILLIGRAM, QID
     Dates: start: 20200512
  59. EFIENT [Concomitant]
     Active Substance: PRASUGREL HYDROCHLORIDE
     Indication: THROMBOSIS PROPHYLAXIS
     Dosage: 3.75 MILLIGRAM, QD
     Dates: start: 20200317
  60. PREDNISOLONE. [Concomitant]
     Active Substance: PREDNISOLONE
     Dosage: 7.5 MILLIGRAM, QD
     Dates: start: 20200716, end: 20200806
  61. BETAMETHASONE. [Concomitant]
     Active Substance: BETAMETHASONE
     Indication: HYPERSENSITIVITY
     Dosage: 4 MILLIGRAM, QD
     Dates: start: 20200413, end: 20200414
  62. BETAMETHASONE. [Concomitant]
     Active Substance: BETAMETHASONE
     Dosage: 2 MILLIGRAM, QD
     Dates: start: 20200502, end: 20200508
  63. BETAMETHASONE. [Concomitant]
     Active Substance: BETAMETHASONE
     Dosage: 1.0 MILLIGRAM, QD
     Dates: start: 20200515, end: 20200521
  64. INDOMETACIN PAP BMD [Concomitant]
     Indication: PAIN
     Dosage: SINGLE DOSE, AS NECESSARY
     Dates: end: 20200325
  65. LYRICA [Concomitant]
     Active Substance: PREGABALIN
     Indication: PAIN
     Dosage: 75 MILLIGRAM, TID
     Dates: start: 20130702, end: 20200209
  66. LYRICA [Concomitant]
     Active Substance: PREGABALIN
     Indication: CARDIAC FAILURE CONGESTIVE
     Dosage: 50 MILLIGRAM, BID
     Dates: start: 20200209, end: 20200209
  67. SYMBICORT [Concomitant]
     Active Substance: BUDESONIDE\FORMOTEROL FUMARATE DIHYDRATE
     Dosage: TWO INHALATIONS IN THE MORNING, TWO BEFORE BED
     Dates: start: 20200212, end: 2020
  68. SYMBICORT [Concomitant]
     Active Substance: BUDESONIDE\FORMOTEROL FUMARATE DIHYDRATE
     Dosage: 3 TIMES OF INHALATION
     Dates: start: 20200308
  69. NICORANDIL [Concomitant]
     Active Substance: NICORANDIL
     Dosage: 5 MILLIGRAM, BID
     Dates: start: 20200408, end: 20200511
  70. CYMBALTA [Concomitant]
     Active Substance: DULOXETINE HYDROCHLORIDE
     Indication: PAIN
     Dosage: 60 MILLIGRAM, QD
     Dates: start: 20190826
  71. PRIMPERAN [Concomitant]
     Active Substance: METOCLOPRAMIDE HYDROCHLORIDE
     Indication: NAUSEA
     Dosage: 10 MILLIGRAM, QD
     Dates: start: 20200316, end: 20200325
  72. PIMOBENDAN [Concomitant]
     Active Substance: PIMOBENDAN
     Dosage: 3.75 MILLIGRAM, BID
     Dates: start: 20200512
  73. DIART [Concomitant]
     Active Substance: AZOSEMIDE
     Dosage: 30 MILLIGRAM, QD
     Dates: start: 20200317, end: 20200414
  74. GOOFICE [Concomitant]
     Active Substance: ELOBIXIBAT
     Indication: CONSTIPATION
     Dosage: 10 MILLIGRAM, QD
     Dates: start: 20200402
  75. BETAMETHASONE. [Concomitant]
     Active Substance: BETAMETHASONE
     Dosage: 1.5 MILLIGRAM, QD
     Dates: start: 20200509, end: 20200514
  76. CILNIDIPINE [Concomitant]
     Active Substance: CILNIDIPINE
     Indication: HYPERTENSION
     Dosage: 5 MILLIGRAM, BID
     Dates: start: 20200502, end: 20200507
  77. POSTERISAN [HYDROCORTISONE] [Concomitant]
     Indication: HAEMORRHOIDS
     Dosage: OPTIMUM DOSE, AS NECESSARY
     Dates: start: 20200510

REACTIONS (3)
  - Asthma [Unknown]
  - Cardiac failure congestive [Recovered/Resolved with Sequelae]
  - Acute myocardial infarction [Recovered/Resolved with Sequelae]

NARRATIVE: CASE EVENT DATE: 202001
